FAERS Safety Report 7044802-4 (Version None)
Quarter: 2010Q4

REPORT INFORMATION
  Report Type: 
  Country: None (occurrence: None)
  Receive Date: 20101014
  Receipt Date: 20101001
  Transmission Date: 20110411
  Serious: Yes (Other)
  Sender: FDA-Public Use
  Company Number: PHHY2010DE66139

PATIENT
  Sex: Male

DRUGS (3)
  1. RASILEZ [Suspect]
  2. TRIAMTERENE AND HYDROCHLOROTHIAZIDE [Concomitant]
  3. DIURETICS [Concomitant]

REACTIONS (1)
  - CIRCULATORY COLLAPSE [None]
